FAERS Safety Report 9695992 (Version 1)
Quarter: 2013Q4

REPORT INFORMATION
  Report Type: Spontaneous
  Country: BE (occurrence: BE)
  Receive Date: 20131119
  Receipt Date: 20131119
  Transmission Date: 20140711
  Serious: Yes (Hospitalization)
  Sender: FDA-Public Use
  Company Number: BE-B.I. PHARMACEUTICALS,INC./RIDGEFIELD-2013-BI-37473BL

PATIENT
  Age: 80 Year
  Sex: Male
  Weight: 99 kg

DRUGS (9)
  1. PRADAXA [Suspect]
     Dosage: 300 MG
     Route: 048
     Dates: start: 20131008
  2. CORDARONE [Suspect]
     Dosage: 200 MG
     Route: 048
     Dates: start: 20131008
  3. APROVEL [Concomitant]
  4. SPIRIVA [Concomitant]
  5. SERETIDE [Concomitant]
  6. ATORVASTATIN [Concomitant]
  7. SERENACE [Concomitant]
  8. BISOPROLOL [Concomitant]
  9. ASAFLOW [Concomitant]

REACTIONS (2)
  - Dyspnoea [Not Recovered/Not Resolved]
  - Weight increased [Not Recovered/Not Resolved]
